FAERS Safety Report 25220954 (Version 1)
Quarter: 2025Q2

REPORT INFORMATION
  Report Type: Report from Study
  Country: CN (occurrence: CN)
  Receive Date: 20250421
  Receipt Date: 20250421
  Transmission Date: 20250717
  Serious: Yes (Death, Other)
  Sender: ELI LILLY AND COMPANY
  Company Number: CN-ELI_LILLY_AND_COMPANY-CN202504014752

PATIENT
  Age: 73 Year
  Sex: Female

DRUGS (3)
  1. ALIMTA [Suspect]
     Active Substance: PEMETREXED DISODIUM
     Indication: HER2 mutant non-small cell lung cancer
     Route: 065
     Dates: start: 20200908
  2. PYROTINIB [Suspect]
     Active Substance: PYROTINIB
     Indication: HER2 mutant non-small cell lung cancer
     Route: 065
  3. CARBOPLATIN [Suspect]
     Active Substance: CARBOPLATIN
     Indication: HER2 mutant non-small cell lung cancer
     Route: 065
     Dates: start: 20200908

REACTIONS (6)
  - Death [Fatal]
  - Diarrhoea [Unknown]
  - Electrolyte imbalance [Unknown]
  - Fatigue [Unknown]
  - Decreased appetite [Unknown]
  - Nausea [Unknown]
